FAERS Safety Report 14344660 (Version 1)
Quarter: 2018Q1

REPORT INFORMATION
  Report Type: Report from Study
  Country: None (occurrence: AR)
  Receive Date: 20180103
  Receipt Date: 20180103
  Transmission Date: 20180509
  Serious: Yes (Other)
  Sender: FDA-Public Use
  Company Number: AR-ABBVIE-17K-007-1987959-00

PATIENT
  Sex: Female

DRUGS (1)
  1. HUMIRA [Suspect]
     Active Substance: ADALIMUMAB
     Indication: RHEUMATOID ARTHRITIS
     Route: 058
     Dates: start: 20130822, end: 201702

REACTIONS (5)
  - Exposure during pregnancy [Unknown]
  - Postoperative thrombosis [Unknown]
  - Weight increased [Unknown]
  - Normal newborn [Unknown]
  - Anaemia [Unknown]

NARRATIVE: CASE EVENT DATE: 2017
